FAERS Safety Report 4568690-0 (Version None)
Quarter: 2005Q1

REPORT INFORMATION
  Report Type: 
  Country: None (occurrence: None)
  Receive Date: 20050202
  Receipt Date: 20041008
  Transmission Date: 20050727
  Serious: Yes (Hospitalization)
  Sender: FDA-Public Use
  Company Number: FR-MERCK-0410FRA00044

PATIENT
  Age: 54 Year
  Sex: Male
  Weight: 103 kg

DRUGS (5)
  1. VIOXX [Suspect]
     Route: 048
     Dates: start: 20040909, end: 20040925
  2. VALSARTAN [Concomitant]
     Indication: HYPERTENSION
     Route: 048
     Dates: start: 20040909, end: 20040925
  3. OMEPRAZOLE [Concomitant]
     Indication: HIATUS HERNIA
     Route: 048
     Dates: start: 20040909, end: 20040925
  4. TETRAZEPAM [Concomitant]
     Route: 048
     Dates: start: 20040909, end: 20040925
  5. ASPIRIN AND CAFFEINE AND PROPOXYPHENE HYDROCHLORIDE [Concomitant]
     Route: 048
     Dates: start: 20040909, end: 20040925

REACTIONS (4)
  - CHRONIC LYMPHOCYTIC LEUKAEMIA [None]
  - IDIOPATHIC THROMBOCYTOPENIC PURPURA [None]
  - THROMBOCYTOPENIA [None]
  - WEIGHT DECREASED [None]
